FAERS Safety Report 7960302-9 (Version None)
Quarter: 2011Q4

REPORT INFORMATION
  Report Type: 
  Country: None (occurrence: None)
  Receive Date: 20111206
  Receipt Date: 20111206
  Transmission Date: 20120403
  Serious: Yes (Hospitalization)
  Sender: FDA-Public Use
  Company Number: PHHO2010JP05694

PATIENT
  Sex: Female

DRUGS (26)
  1. CEFMETAZON [Concomitant]
  2. FUNGUARD [Concomitant]
  3. INTRALIPID 10% [Concomitant]
  4. ELASPOL [Concomitant]
  5. DOPAMINE HYDROCHLORIDE [Concomitant]
  6. ALBUMIN (HUMAN) [Concomitant]
  7. FOY [Concomitant]
  8. AFINITOR [Suspect]
     Indication: METASTATIC GASTRIC CANCER
     Dosage: 10 MG, QD
     Route: 048
     Dates: start: 20100107, end: 20100402
  9. VEEN D [Concomitant]
  10. SOLITA-T3 INJECTION [Concomitant]
  11. ASPARA K [Concomitant]
  12. SODIUM BICARBONATE [Concomitant]
  13. MEROPENEM [Concomitant]
  14. LASIX [Concomitant]
  15. AMINO ACIDS NOS W/CARBOHYD. NOS/ELECTROL. NOS [Concomitant]
  16. HUMULIN R [Concomitant]
  17. SCOPOLAMINE [Concomitant]
  18. FRESH FROZEN PLASMA [Concomitant]
  19. MIDAZOLAM HCL [Concomitant]
  20. VEEN-F [Concomitant]
  21. ALBUMIN (HUMAN) [Concomitant]
  22. VENOGLOBULIN [Concomitant]
  23. CLINDAMYCIN HCL [Concomitant]
  24. RINGER'S SOLUTION [Concomitant]
  25. SOLITA-T1 INJECTION [Concomitant]
  26. HALOPERIDOL [Concomitant]

REACTIONS (16)
  - DEHYDRATION [None]
  - DIARRHOEA [None]
  - INTERNAL HERNIA [None]
  - DEPRESSED LEVEL OF CONSCIOUSNESS [None]
  - FATIGUE [None]
  - PYREXIA [None]
  - OEDEMA PERIPHERAL [None]
  - ABDOMINAL ADHESIONS [None]
  - ANAEMIA [None]
  - GASTROINTESTINAL PERFORATION [None]
  - INTESTINAL OBSTRUCTION [None]
  - ILEUS [None]
  - NAUSEA [None]
  - VOMITING [None]
  - STOMATITIS [None]
  - ABDOMINAL PAIN [None]
